FAERS Safety Report 12678218 (Version 2)
Quarter: 2016Q3

REPORT INFORMATION
  Report Type: Spontaneous
  Country: US (occurrence: US)
  Receive Date: 20160823
  Receipt Date: 20160909
  Transmission Date: 20161109
  Serious: Yes (Other)
  Sender: FDA-Public Use
  Company Number: US-BAYER-2016-162766

PATIENT
  Age: 35 Year
  Sex: Female

DRUGS (1)
  1. MIRENA [Suspect]
     Active Substance: LEVONORGESTREL
     Indication: CONTRACEPTION
     Dosage: 20 MCG/24HR, CONT
     Route: 015
     Dates: start: 20160407, end: 20160831

REACTIONS (10)
  - Tongue biting [None]
  - Genital haemorrhage [None]
  - Mouth haemorrhage [None]
  - Seizure [None]
  - Procedural haemorrhage [None]
  - Tongue haemorrhage [None]
  - Bite [None]
  - Acne [None]
  - Alopecia [None]
  - Procedural pain [None]

NARRATIVE: CASE EVENT DATE: 2016
